FAERS Safety Report 6212379-9 (Version None)
Quarter: 2009Q2

REPORT INFORMATION
  Report Type: 
  Country: None (occurrence: None)
  Receive Date: 20090603
  Receipt Date: 20090518
  Transmission Date: 20091009
  Serious: Yes (Other)
  Sender: FDA-Public Use
  Company Number: JP-RANBAXY-2009RR-24306

PATIENT
  Age: 34 Year
  Sex: Female

DRUGS (7)
  1. CETIRIZINE [Suspect]
  2. FEXOFENADINE [Suspect]
     Indication: URTICARIA
     Dosage: 120 MG, QD
  3. FEXOFENADINE [Suspect]
     Dosage: 60 MG, UNK
  4. OLOPATADINE [Suspect]
     Dosage: 10 MG, UNK
  5. CHLORPHENIRAMINE MALEATE [Suspect]
  6. EBASTINE [Suspect]
  7. HYDROXYZINE [Suspect]
     Indication: URTICARIA
     Dosage: 25 MG, UNK

REACTIONS (3)
  - ABDOMINAL PAIN [None]
  - URTICARIA [None]
  - VOMITING [None]
